FAERS Safety Report 7210207-6 (Version None)
Quarter: 2011Q1

REPORT INFORMATION
  Report Type: 
  Country: None (occurrence: None)
  Receive Date: 20110105
  Receipt Date: 20101228
  Transmission Date: 20110831
  Serious: Yes (Other)
  Sender: FDA-Public Use
  Company Number: US-JNJFOC-20101005865

PATIENT
  Sex: Female
  Weight: 88 kg

DRUGS (4)
  1. LEVAQUIN [Suspect]
     Indication: EAR INFECTION
     Route: 048
  2. CIPROFLOXACIN [Suspect]
     Indication: INFECTION
     Route: 065
  3. LEVAQUIN [Suspect]
     Indication: URINARY TRACT INFECTION
     Route: 048
  4. LEVAQUIN [Suspect]
     Indication: SINUSITIS
     Route: 048

REACTIONS (8)
  - ROTATOR CUFF SYNDROME [None]
  - BURSITIS [None]
  - DRUG INEFFECTIVE [None]
  - PLANTAR FASCIITIS [None]
  - TENOSYNOVITIS STENOSANS [None]
  - TENDONITIS [None]
  - TENDON DISORDER [None]
  - MUSCLE STRAIN [None]
